FAERS Safety Report 21076580 (Version 10)
Quarter: 2023Q2

REPORT INFORMATION
  Report Type: Spontaneous
  Country: US (occurrence: US)
  Receive Date: 20220713
  Receipt Date: 20230410
  Transmission Date: 20230721
  Serious: Yes (Hospitalization, Other)
  Sender: FDA-Public Use
  Company Number: US-GLAXOSMITHKLINE-US2022AMR104320

PATIENT

DRUGS (8)
  1. FLOLAN [Suspect]
     Active Substance: EPOPROSTENOL SODIUM
     Indication: Pulmonary arterial hypertension
     Dosage: 28.9 NG/KG, CO, 28.9 NG/KG/MIN, PUMP RATE 89 ML/DAY
     Dates: start: 20110923
  2. FLOLAN [Suspect]
     Active Substance: EPOPROSTENOL SODIUM
     Indication: Pulmonary arterial hypertension
     Dosage: 28.9 NG/KG/MIN,CO,  PUMP RATE 89 ML/DAY
     Dates: start: 20110923
  3. FLOLAN [Suspect]
     Active Substance: EPOPROSTENOL SODIUM
     Indication: Pulmonary arterial hypertension
     Dosage: 29 NG/KG, CO, 29 NG/KG/MIN, PUMP RATE: 59 ML/DAY
     Dates: start: 20110923
  4. FLOLAN [Suspect]
     Active Substance: EPOPROSTENOL SODIUM
     Indication: Pulmonary arterial hypertension
     Dosage: 29.3 NG/KG, CO (PUMP RATE: 60 ML/DAY, VIAL STRENGTH: 1.5 MG)
     Dates: start: 20110923
  5. GLYCINE\MANNITOL\SODIUM CHLORIDE [Suspect]
     Active Substance: GLYCINE\MANNITOL\SODIUM CHLORIDE
     Indication: Vehicle solution use
     Dosage: UNK
     Dates: start: 20170207
  6. LINEZOLID [Suspect]
     Active Substance: LINEZOLID
     Indication: Product used for unknown indication
     Dosage: 1 DF, BID, 600 MG
     Dates: end: 20221230
  7. OPSUMIT [Concomitant]
     Active Substance: MACITENTAN
     Indication: Product used for unknown indication
     Dosage: UNK
  8. ADCIRCA [Concomitant]
     Active Substance: TADALAFIL
     Indication: Product used for unknown indication
     Dosage: UNK

REACTIONS (12)
  - Breast operation [Unknown]
  - Catheter site infection [Not Recovered/Not Resolved]
  - Pneumonia [Unknown]
  - Breast cancer [Unknown]
  - Injection site infection [Unknown]
  - Injection site irritation [Unknown]
  - Nausea [Unknown]
  - Catheter site erythema [Recovering/Resolving]
  - Catheter site swelling [Unknown]
  - Hypersensitivity [Unknown]
  - Platelet count decreased [Unknown]
  - Decreased immune responsiveness [Unknown]

NARRATIVE: CASE EVENT DATE: 20220701
